FAERS Safety Report 6857059-1 (Version None)
Quarter: 2010Q3

REPORT INFORMATION
  Report Type: 
  Country: None (occurrence: None)
  Receive Date: 20100719
  Receipt Date: 20100712
  Transmission Date: 20110219
  Serious: Yes (Hospitalization)
  Sender: FDA-Public Use
  Company Number: A0870895A

PATIENT
  Age: 71 Year
  Sex: Female

DRUGS (3)
  1. ARIXTRA [Suspect]
     Dosage: 2.5MG UNKNOWN
     Dates: start: 20100707
  2. HEMODIALYSIS [Concomitant]
  3. TORADOL [Concomitant]

REACTIONS (1)
  - EPISTAXIS [None]
